FAERS Safety Report 20699756 (Version 1)
Quarter: 2022Q2

REPORT INFORMATION
  Report Type: Spontaneous
  Country: LB (occurrence: LB)
  Receive Date: 20220412
  Receipt Date: 20220412
  Transmission Date: 20220721
  Serious: Yes (Other)
  Sender: FDA-Public Use
  Company Number: LB-ABBVIE-22K-093-4354159-00

PATIENT
  Age: 55 Year
  Sex: Male

DRUGS (2)
  1. HUMIRA [Suspect]
     Active Substance: ADALIMUMAB
     Indication: Colitis ulcerative
     Dosage: INDUCTION THEN MAINTENANCE
     Route: 058
     Dates: start: 202201
  2. SINTROM [Concomitant]
     Active Substance: ACENOCOUMAROL
     Indication: Coagulopathy
     Route: 065

REACTIONS (3)
  - Haemoglobin abnormal [Unknown]
  - Serum ferritin decreased [Unknown]
  - Blood iron decreased [Unknown]

NARRATIVE: CASE EVENT DATE: 20220101
